FAERS Safety Report 7931185-8 (Version None)
Quarter: 2011Q4

REPORT INFORMATION
  Report Type: 
  Country: None (occurrence: None)
  Receive Date: 20111121
  Receipt Date: 20111108
  Transmission Date: 20120403
  Serious: No
  Sender: FDA-Public Use
  Company Number: US-ELI_LILLY_AND_COMPANY-US201108005817

PATIENT
  Weight: 3.429 kg

DRUGS (9)
  1. GLUCOSAMINE HYDROCHLORIDE [Concomitant]
     Indication: SUPPLEMENTATION THERAPY
     Dosage: 1500 MG, QD
     Route: 048
  2. DULOXETINE HYDROCHLORIDE [Suspect]
     Indication: DEPRESSION
     Dosage: 60 MG, QD
     Route: 015
  3. IRON [Concomitant]
     Indication: SUPPLEMENTATION THERAPY
     Dosage: 27 MG, QD
     Route: 015
  4. ATENOLOL [Concomitant]
     Indication: HYPERTENSION
     Dosage: 50 MG, QD
     Route: 015
  5. METAMUCIL-2 [Concomitant]
     Indication: IRRITABLE BOWEL SYNDROME
     Dosage: UNK, QD
     Route: 015
  6. LABETALOL HCL [Concomitant]
     Indication: HYPERTENSION
     Dosage: 100 MG, QD
     Route: 015
  7. ALIGN [Concomitant]
     Indication: IRRITABLE BOWEL SYNDROME
     Dosage: 4 MG, QD
     Route: 015
  8. OMEPRAZOLE [Concomitant]
     Indication: GASTROOESOPHAGEAL REFLUX DISEASE
     Dosage: 40 MG, QD
     Route: 015
  9. PRENATAL VITAMINS                  /01549301/ [Concomitant]
     Indication: PREGNANCY
     Dosage: 800 UG, QD
     Route: 015

REACTIONS (2)
  - FOETAL EXPOSURE DURING PREGNANCY [None]
  - EXPOSURE DURING BREAST FEEDING [None]
